FAERS Safety Report 5935996-X (Version None)
Quarter: 2008Q4

REPORT INFORMATION
  Report Type: 
  Country: None (occurrence: None)
  Receive Date: 20081030
  Receipt Date: 20081020
  Transmission Date: 20090506
  Serious: Yes (Disabling)
  Sender: FDA-Public Use
  Company Number: JP-WYE-H06580408

PATIENT
  Sex: Male

DRUGS (2)
  1. HYPEN [Suspect]
     Indication: SPINAL OSTEOARTHRITIS
     Route: 048
     Dates: start: 20080829, end: 20080830
  2. FELBINAC [Concomitant]
     Indication: SPINAL OSTEOARTHRITIS
     Dosage: UNSPECIFIED
     Route: 062
     Dates: start: 20080829

REACTIONS (1)
  - MUSCULAR WEAKNESS [None]
